FAERS Safety Report 8262108-2 (Version None)
Quarter: 2012Q2

REPORT INFORMATION
  Report Type: 
  Country: None (occurrence: None)
  Receive Date: 20120405
  Receipt Date: 20120322
  Transmission Date: 20120825
  Serious: Yes (Hospitalization)
  Sender: FDA-Public Use
  Company Number: RU-ROCHE-1010564

PATIENT
  Sex: Female
  Weight: 79 kg

DRUGS (13)
  1. FOLIC ACID [Concomitant]
     Route: 048
  2. BIPROLOL [Concomitant]
     Route: 048
  3. ACTEMRA [Suspect]
     Dates: start: 20110823
  4. ACTEMRA [Suspect]
     Dosage: DOSE INTERRUPTED
     Dates: start: 20110624
  5. PREDNISOLONE [Concomitant]
     Route: 048
  6. TOLPERISONE [Concomitant]
     Route: 048
  7. ACTEMRA [Suspect]
     Dates: start: 20110727
  8. ACTEMRA [Suspect]
     Indication: RHEUMATOID ARTHRITIS
     Dosage: DATE OF LAST DOSE ADMINISTERED PRIOR TO SAE: 24 AUG 2011. TEMPORARILY INTERRUPTED ON 24 AUG 2011, DU
     Route: 042
     Dates: start: 20100114, end: 20110824
  9. ACTEMRA [Suspect]
     Dates: start: 20110525
  10. MELOXICAM [Concomitant]
     Route: 048
  11. LISINOPRIL [Concomitant]
     Route: 048
  12. DIABETON [Concomitant]
     Route: 048
  13. METHOTREXATE [Suspect]
     Indication: RHEUMATOID ARTHRITIS
     Dosage: LAST DOSE ADMINISTERED PRIOR TO SAE: 18 SEP 2011. TEMPORARILY INTERUPPTED ON 19 SEP 2011 DUE TO THE
     Route: 048
     Dates: start: 20100116, end: 20110919

REACTIONS (1)
  - GANGRENE [None]
